FAERS Safety Report 16157796 (Version 4)
Quarter: 2019Q2

REPORT INFORMATION
  Report Type: Spontaneous
  Country: JP (occurrence: JP)
  Receive Date: 20190404
  Receipt Date: 20190510
  Transmission Date: 20190711
  Serious: Yes (Other)
  Sender: FDA-Public Use
  Company Number: JP-PFIZER INC-2019146208

PATIENT
  Age: 9 Decade
  Sex: Male
  Weight: 77.9 kg

DRUGS (10)
  1. VENOGLOBULIN [Concomitant]
     Active Substance: HUMAN IMMUNOGLOBULIN G
     Indication: ENCEPHALITIS
     Dosage: UNK
  2. VORICONAZOLE. [Concomitant]
     Active Substance: VORICONAZOLE
     Indication: ENCEPHALITIS
     Dosage: UNK
  3. BICILLIN [BENZATHINE BENZYLPENICILLIN] [Concomitant]
     Indication: ENCEPHALITIS
     Dosage: UNK
  4. MEROPENEM. [Suspect]
     Active Substance: MEROPENEM
     Indication: ENCEPHALITIS
     Dosage: UNK
  5. VICCLOX [ACICLOVIR SODIUM] [Concomitant]
     Indication: ENCEPHALITIS
     Dosage: UNK
  6. CEFTRIAXONE. [Concomitant]
     Active Substance: CEFTRIAXONE
     Indication: ENCEPHALITIS
     Dosage: UNK
  7. LEVETIRACETAM. [Concomitant]
     Active Substance: LEVETIRACETAM
     Indication: MUSCLE SPASMS
     Dosage: UNK
  8. VANCOMYCIN [Concomitant]
     Active Substance: VANCOMYCIN
     Indication: ENCEPHALITIS
     Dosage: UNK
  9. ACYCLOVIR [ACICLOVIR] [Concomitant]
     Active Substance: ACYCLOVIR
     Indication: ENCEPHALITIS
     Dosage: UNK
  10. DEXAMETHASONE. [Concomitant]
     Active Substance: DEXAMETHASONE
     Indication: ENCEPHALITIS
     Dosage: UNK

REACTIONS (1)
  - Renal impairment [Unknown]
